FAERS Safety Report 5089796-6 (Version None)
Quarter: 2006Q3

REPORT INFORMATION
  Report Type: 
  Country: None (occurrence: None)
  Receive Date: 20060828
  Receipt Date: 20060612
  Transmission Date: 20061208
  Serious: Yes (Hospitalization, Disabling, Other)
  Sender: FDA-Public Use
  Company Number: PHMT2006CA01379

PATIENT
  Age: 54 Year
  Sex: Male

DRUGS (6)
  1. CLOZARIL [Suspect]
     Indication: SCHIZOPHRENIA
     Dosage: 400 MG, QD
     Route: 048
     Dates: start: 19940101
  2. CLOZARIL [Suspect]
     Dosage: 300 MG, QD
  3. LYRICA [Concomitant]
     Indication: PAIN
  4. PROPRANOLOL [Concomitant]
     Dosage: 10 MG, QID
     Dates: start: 20010101
  5. BENZODIAZEPINES [Concomitant]
  6. DALMANE [Concomitant]
     Dosage: 15 MG, QHS
     Dates: start: 19960101

REACTIONS (2)
  - MYOCLONUS [None]
  - POLYNEUROPATHY [None]
